FAERS Safety Report 7083703-2 (Version None)
Quarter: 2010Q4

REPORT INFORMATION
  Report Type: 
  Country: None (occurrence: None)
  Receive Date: 20101103
  Receipt Date: 20101103
  Transmission Date: 20110411
  Serious: Yes (Other)
  Sender: FDA-Public Use
  Company Number: None

PATIENT
  Age: 50 Year
  Sex: Female
  Weight: 126.5536 kg

DRUGS (1)
  1. HEPARIN [Suspect]
     Indication: PREOPERATIVE CARE
     Dosage: 5000 UNITS
     Dates: start: 20100726, end: 20100726

REACTIONS (2)
  - OPERATIVE HAEMORRHAGE [None]
  - PRODUCT QUALITY ISSUE [None]
